FAERS Safety Report 6287499-3 (Version None)
Quarter: 2009Q3

REPORT INFORMATION
  Report Type: 
  Country: None (occurrence: None)
  Receive Date: 20090727
  Receipt Date: 20090718
  Transmission Date: 20100115
  Serious: Yes (Other)
  Sender: FDA-Public Use
  Company Number: CHPA2009US15486

PATIENT
  Age: 59 Year
  Sex: Male

DRUGS (25)
  1. BENEFIBER (NCH) [Suspect]
     Indication: DIARRHOEA
     Dosage: ORAL
     Route: 048
     Dates: start: 20080101, end: 20080101
  2. CITRUCEL (METHYLCELLULOSE) [Concomitant]
  3. METAMUCIL (ISPAGHULA, PLANTAGO OVATA) [Concomitant]
  4. NITROGLYCERIN ^A.L.^ (GYCERYL TRINITRATE) [Concomitant]
  5. AMIODARONE [Concomitant]
  6. ALLOPURINOL [Concomitant]
  7. IMODIUM ^JANNSEN^ (LOPERAMIDE HYDROCHLORIDE) [Concomitant]
  8. TIMOLOL MALEATE [Concomitant]
  9. COUMADIN [Concomitant]
  10. DEMADEX [Concomitant]
  11. DIOVAN [Concomitant]
  12. ISOSORBIDE MONONITRATE [Concomitant]
  13. LORATADINE [Concomitant]
  14. PLAVIX [Concomitant]
  15. KLOR-CON [Concomitant]
  16. ALDACTONE [Concomitant]
  17. TEMAZEPAM [Concomitant]
  18. NEXIUM [Concomitant]
  19. CRESTOR [Concomitant]
  20. LYRICA [Concomitant]
  21. TOPAMAX [Concomitant]
  22. MULTIVITAMINS (ASCORBIC ACID, ERGOCALCIFEROL, FOLIC ACID, NICOTINAMIDE [Concomitant]
  23. BENADRYL ^PHIZER WARNER-LAMBERT^ (DIPHENHYDRAMINE HYDROCHLORIDE_ [Concomitant]
  24. TYLENOL [Concomitant]
  25. KONSYL (PSYLLIUM HYDROPHILIC MUCILLOID) [Concomitant]

REACTIONS (2)
  - DIVERTICULITIS [None]
  - DRUG INEFFECTIVE [None]
